FAERS Safety Report 18282566 (Version 1)
Quarter: 2020Q3

REPORT INFORMATION
  Report Type: Spontaneous
  Country: US (occurrence: US)
  Receive Date: 20200918
  Receipt Date: 20200918
  Transmission Date: 20201103
  Serious: No
  Sender: FDA-Public Use
  Company Number: US-GLENMARK PHARMACEUTICALS-2020GMK049522

PATIENT

DRUGS (1)
  1. PIMECROLIMUS CREAM, 1% [Suspect]
     Active Substance: PIMECROLIMUS
     Indication: PERIORAL DERMATITIS
     Dosage: UNK
     Route: 065

REACTIONS (2)
  - Product use issue [Unknown]
  - Product use in unapproved indication [Unknown]
